FAERS Safety Report 8784084 (Version 1)
Quarter: 2012Q4

REPORT INFORMATION
  Report Type: 
  Country: UZ (occurrence: UZ)
  Receive Date: 20120913
  Receipt Date: 20120913
  Transmission Date: 20130627
  Serious: Yes (Death, Other)
  Sender: FDA-Public Use
  Company Number: PHHY2009UZ071140

PATIENT
  Sex: Female

DRUGS (1)
  1. GLIVEC [Suspect]
     Dosage: UNK
     Dates: start: 20060320

REACTIONS (2)
  - Blast crisis in myelogenous leukaemia [Fatal]
  - Hepatitis C [Unknown]
